FAERS Safety Report 23531985 (Version 3)
Quarter: 2025Q4

REPORT INFORMATION
  Report Type: Spontaneous
  Country: US (occurrence: US)
  Receive Date: 20240216
  Receipt Date: 20251125
  Transmission Date: 20260118
  Serious: No
  Sender: SANOFI AVENTIS
  Company Number: US-SA-SAC20240212000666

PATIENT
  Age: 85 Year
  Sex: Male

DRUGS (1)
  1. DUPIXENT [Suspect]
     Active Substance: DUPILUMAB
     Indication: Dermatitis
     Dosage: 300 MG, QOW
     Route: 058

REACTIONS (8)
  - Diarrhoea [Recovered/Resolved]
  - Anal incontinence [Recovered/Resolved]
  - Injection site pain [Recovered/Resolved]
  - Eczema [Unknown]
  - Therapeutic response decreased [Unknown]
  - Rash macular [Unknown]
  - Therapeutic response shortened [Unknown]
  - Product use in unapproved indication [Unknown]
